FAERS Safety Report 7319233-X (Version None)
Quarter: 2011Q1

REPORT INFORMATION
  Report Type: 
  Country: None (occurrence: None)
  Receive Date: 20110228
  Receipt Date: 20110215
  Transmission Date: 20110831
  Serious: Yes (Other)
  Sender: FDA-Public Use
  Company Number: PHHY2010CA66075

PATIENT
  Sex: Male

DRUGS (1)
  1. SANDOSTATIN LAR [Suspect]
     Indication: SMALL INTESTINE CARCINOMA
     Dosage: 30 MG, QMO
     Route: 030
     Dates: start: 20100805

REACTIONS (8)
  - DECREASED APPETITE [None]
  - DYSGEUSIA [None]
  - BLOOD GLUCOSE INCREASED [None]
  - DIZZINESS [None]
  - NAUSEA [None]
  - BLOOD GLUCOSE DECREASED [None]
  - FALL [None]
  - WEIGHT DECREASED [None]
